FAERS Safety Report 16465343 (Version 2)
Quarter: 2019Q3

REPORT INFORMATION
  Report Type: Spontaneous
  Country: BR (occurrence: BR)
  Receive Date: 20190621
  Receipt Date: 20190729
  Transmission Date: 20191004
  Serious: Yes (Other)
  Sender: FDA-Public Use
  Company Number: BR-TOPROL ACQUISITION LLC-2019-TOP-000426

PATIENT
  Sex: Male
  Weight: 135 kg

DRUGS (3)
  1. BENICAR [Concomitant]
     Active Substance: OLMESARTAN MEDOXOMIL
     Indication: HYPERTENSION
     Dosage: DAILY
     Route: 048
     Dates: start: 2018
  2. METOPROLOL SUCCINATE. [Suspect]
     Active Substance: METOPROLOL SUCCINATE
     Indication: HYPERTENSION
     Dosage: 50 MG, QD
     Route: 048
     Dates: start: 2017
  3. CHLORTHALIDONE. [Concomitant]
     Active Substance: CHLORTHALIDONE
     Indication: MIGRAINE
     Dosage: DAILY
     Route: 048

REACTIONS (5)
  - Tremor [Unknown]
  - Seizure [Recovered/Resolved]
  - Vascular occlusion [Not Recovered/Not Resolved]
  - Loss of consciousness [Recovered/Resolved]
  - Inappropriate affect [Unknown]

NARRATIVE: CASE EVENT DATE: 2019
